FAERS Safety Report 15978749 (Version 1)
Quarter: 2019Q1

REPORT INFORMATION
  Report Type: Spontaneous
  Country: JP (occurrence: JP)
  Receive Date: 20190219
  Receipt Date: 20190219
  Transmission Date: 20190418
  Serious: Yes (Hospitalization, Other)
  Sender: FDA-Public Use
  Company Number: JP-SA-2019SA041691

PATIENT
  Age: 70 Year
  Sex: Female

DRUGS (4)
  1. TAXOTERE [Suspect]
     Active Substance: DOCETAXEL
     Indication: SQUAMOUS CELL CARCINOMA OF LUNG
     Route: 041
  2. PREDNISOLONE. [Concomitant]
     Active Substance: PREDNISOLONE
     Dosage: DECREASED FROM 70MG/DAY
     Route: 065
  3. PREDNISOLONE. [Concomitant]
     Active Substance: PREDNISOLONE
     Indication: ENTEROCOLITIS
     Dosage: 70MG/DAY
     Route: 065
  4. INFLIXIMAB [Concomitant]
     Active Substance: INFLIXIMAB
     Indication: ENTEROCOLITIS
     Dosage: UNK
     Route: 065

REACTIONS (4)
  - Proctalgia [Unknown]
  - Neutropenia [Recovering/Resolving]
  - Pyrexia [Unknown]
  - Anal abscess [Unknown]
